FAERS Safety Report 13612846 (Version 4)
Quarter: 2017Q3

REPORT INFORMATION
  Report Type: Spontaneous
  Country: KR (occurrence: KR)
  Receive Date: 20170605
  Receipt Date: 20170801
  Transmission Date: 20171127
  Serious: Yes (Hospitalization, Other)
  Sender: FDA-Public Use
  Company Number: KR-009507513-1705KOR015870

PATIENT
  Age: 73 Year
  Sex: Female
  Weight: 51.1 kg

DRUGS (82)
  1. CISPLATIN. [Concomitant]
     Active Substance: CISPLATIN
     Dosage: 55.8 MG, ONCE, CYCLE 3
     Route: 042
     Dates: start: 20170119, end: 20170119
  2. CISPLATIN. [Concomitant]
     Active Substance: CISPLATIN
     Dosage: 56.625 MG, ONCE, CYCLE 5
     Route: 042
     Dates: start: 20170315, end: 20170315
  3. TOPOTECAN [Concomitant]
     Active Substance: TOPOTECAN HYDROCHLORIDE
     Indication: OVARIAN CANCER RECURRENT
     Dosage: 1.1 MG, QD, CYCLE 2
     Route: 042
     Dates: start: 20161227, end: 20161229
  4. DEXAMETHASONE. [Concomitant]
     Active Substance: DEXAMETHASONE
     Dosage: 10 MG, ONCE
     Route: 042
     Dates: start: 20170211, end: 20170211
  5. DEXAMETHASONE. [Concomitant]
     Active Substance: DEXAMETHASONE
     Dosage: 8 MG, QD
     Route: 048
     Dates: start: 20170420, end: 20170420
  6. PALONOSETRON HYDROCHLORIDE. [Concomitant]
     Active Substance: PALONOSETRON HYDROCHLORIDE
     Dosage: 0.25 MG, ONCE.
     Route: 042
     Dates: start: 20170315, end: 20170315
  7. PALONOSETRON HYDROCHLORIDE. [Concomitant]
     Active Substance: PALONOSETRON HYDROCHLORIDE
     Dosage: 0.25 MG, ONCE
     Route: 042
     Dates: start: 20170419, end: 20170419
  8. GABAPENTIN. [Concomitant]
     Active Substance: GABAPENTIN
     Indication: EPILEPSY
     Dosage: 100 MG, UNK
     Route: 048
  9. FUROSEMIDE. [Concomitant]
     Active Substance: FUROSEMIDE
     Dosage: 20 MG, BID
     Route: 042
     Dates: start: 20170419, end: 20170419
  10. POTASSIUM CHLORIDE. [Concomitant]
     Active Substance: POTASSIUM CHLORIDE
     Dosage: 20 MEQ, BID
     Route: 042
     Dates: start: 20170315, end: 20170315
  11. MAGNESIUM SULFATE. [Concomitant]
     Active Substance: MAGNESIUM SULFATE
     Dosage: 1 G, BID
     Route: 042
     Dates: start: 20170211, end: 20170211
  12. FAMOTIDINE. [Concomitant]
     Active Substance: FAMOTIDINE
     Dosage: 20 MG, QD
     Route: 042
     Dates: start: 20170211, end: 20170211
  13. FAMOTIDINE. [Concomitant]
     Active Substance: FAMOTIDINE
     Dosage: 20 MG, BID
     Route: 048
     Dates: start: 20170121, end: 20170126
  14. METOCLOPRAMIDE. [Concomitant]
     Active Substance: METOCLOPRAMIDE
     Dosage: 5 MG, PRN
     Route: 048
     Dates: start: 20170214, end: 20170219
  15. METOCLOPRAMIDE. [Concomitant]
     Active Substance: METOCLOPRAMIDE
     Dosage: 5 MG, PRN
     Route: 048
     Dates: start: 20170317, end: 20170322
  16. METOCLOPRAMIDE. [Concomitant]
     Active Substance: METOCLOPRAMIDE
     Dosage: UNK
  17. CISPLATIN. [Concomitant]
     Active Substance: CISPLATIN
     Dosage: 59 MG, ONCE, CYCLE 4
     Route: 042
     Dates: start: 20170211, end: 20170211
  18. DEXAMETHASONE. [Concomitant]
     Active Substance: DEXAMETHASONE
     Dosage: 8 MG, BID
     Route: 048
     Dates: start: 20170121, end: 20170122
  19. DEXAMETHASONE. [Concomitant]
     Active Substance: DEXAMETHASONE
     Dosage: 8 MG, QD
     Route: 048
     Dates: start: 20170316, end: 20170316
  20. DEXAMETHASONE. [Concomitant]
     Active Substance: DEXAMETHASONE
     Dosage: 8 MG, BID
     Route: 048
     Dates: start: 20170421, end: 20170421
  21. PALONOSETRON HYDROCHLORIDE. [Concomitant]
     Active Substance: PALONOSETRON HYDROCHLORIDE
     Dosage: 0.25 MG, ONCE
     Route: 042
     Dates: start: 20170211, end: 20170211
  22. FUROSEMIDE. [Concomitant]
     Active Substance: FUROSEMIDE
     Dosage: 20 MG, BID
     Route: 042
     Dates: start: 20170211, end: 20170211
  23. RANITIDINE. [Concomitant]
     Active Substance: RANITIDINE
     Dosage: 150 ML, BID
     Dates: start: 20170119, end: 20170119
  24. FAMOTIDINE. [Concomitant]
     Active Substance: FAMOTIDINE
     Dosage: 20 MG, BID
     Route: 048
     Dates: start: 20170214, end: 20170221
  25. METOCLOPRAMIDE. [Concomitant]
     Active Substance: METOCLOPRAMIDE
     Dosage: 5 MG, PRN
     Dates: start: 20170421, end: 20170426
  26. EMEND (FOSAPREPITANT DIMEGLUMINE) [Suspect]
     Active Substance: FOSAPREPITANT DIMEGLUMINE
     Dosage: 150 MG, ONCE
     Route: 042
     Dates: start: 20170211, end: 20170211
  27. CISPLATIN. [Concomitant]
     Active Substance: CISPLATIN
     Dosage: 60 MG, ONCE, CYCLE 6
     Route: 042
     Dates: start: 20170419, end: 20170419
  28. DEXAMETHASONE. [Concomitant]
     Active Substance: DEXAMETHASONE
     Indication: CHEMOTHERAPY
     Dosage: 12 MG, QD
     Route: 048
     Dates: start: 20161227, end: 20161227
  29. DEXAMETHASONE. [Concomitant]
     Active Substance: DEXAMETHASONE
     Dosage: 8 MG, BID
     Route: 048
     Dates: start: 20170317, end: 20170326
  30. FUROSEMIDE. [Concomitant]
     Active Substance: FUROSEMIDE
     Indication: OEDEMA
     Dosage: 20 MG, BID
     Route: 042
     Dates: start: 20161227, end: 20161227
  31. FUROSEMIDE. [Concomitant]
     Active Substance: FUROSEMIDE
     Dosage: 20 MG, BID
     Route: 042
     Dates: start: 20170119, end: 20170119
  32. RANITIDINE. [Concomitant]
     Active Substance: RANITIDINE
     Dosage: 150 ML, BID
     Dates: start: 20170211, end: 20170211
  33. SUCRALFATE. [Concomitant]
     Active Substance: SUCRALFATE
     Dosage: 15 ML, TID
     Dates: start: 20170211, end: 20170221
  34. CEFDITOREN PIVOXIL. [Concomitant]
     Active Substance: CEFDITOREN PIVOXIL
     Indication: ANTIBIOTIC PROPHYLAXIS
     Dosage: 100 MG, TID
     Route: 042
     Dates: start: 20161229, end: 20170112
  35. EMEND (FOSAPREPITANT DIMEGLUMINE) [Suspect]
     Active Substance: FOSAPREPITANT DIMEGLUMINE
     Indication: PROPHYLAXIS OF NAUSEA AND VOMITING
     Dosage: 150 MG, ONCE
     Route: 042
     Dates: start: 20161227, end: 20161227
  36. EMEND (FOSAPREPITANT DIMEGLUMINE) [Suspect]
     Active Substance: FOSAPREPITANT DIMEGLUMINE
     Dosage: 150 MG, ONCE
     Route: 042
     Dates: start: 20170119, end: 20170119
  37. TOPOTECAN [Concomitant]
     Active Substance: TOPOTECAN HYDROCHLORIDE
     Dosage: 1.2 MG, QD, CYCLE 4
     Route: 042
     Dates: start: 20170211, end: 20170213
  38. TOPOTECAN [Concomitant]
     Active Substance: TOPOTECAN HYDROCHLORIDE
     Dosage: 1.132 MG, QD, CYCLE 5
     Route: 042
     Dates: start: 20170315, end: 20170317
  39. FAMOTIDINE. [Concomitant]
     Active Substance: FAMOTIDINE
     Indication: ULCER
     Dosage: 20 MG, QD
     Route: 042
     Dates: start: 20161227, end: 20161227
  40. FAMOTIDINE. [Concomitant]
     Active Substance: FAMOTIDINE
     Dosage: 20 MG, BID
     Route: 048
     Dates: start: 20170404, end: 20170408
  41. EMEND (FOSAPREPITANT DIMEGLUMINE) [Suspect]
     Active Substance: FOSAPREPITANT DIMEGLUMINE
     Dosage: 150 MG, ONCE
     Route: 042
     Dates: start: 20170315, end: 20170315
  42. TOPOTECAN [Concomitant]
     Active Substance: TOPOTECAN HYDROCHLORIDE
     Dosage: 1.1 MG, QD, CYCLE 3
     Route: 042
     Dates: start: 20170119, end: 20170121
  43. DEXAMETHASONE. [Concomitant]
     Active Substance: DEXAMETHASONE
     Dosage: 10 MG, ONCE
     Route: 042
     Dates: start: 20170419, end: 20170419
  44. DEXAMETHASONE. [Concomitant]
     Active Substance: DEXAMETHASONE
     Dosage: 8 MG, QD
     Route: 048
     Dates: start: 20161228, end: 20161228
  45. DEXAMETHASONE. [Concomitant]
     Active Substance: DEXAMETHASONE
     Dosage: 12 MG, QD
     Route: 048
     Dates: start: 20170119, end: 20170119
  46. DEXAMETHASONE. [Concomitant]
     Active Substance: DEXAMETHASONE
     Dosage: 8 MG, BID
     Route: 048
     Dates: start: 20170213, end: 20170214
  47. PALONOSETRON HYDROCHLORIDE. [Concomitant]
     Active Substance: PALONOSETRON HYDROCHLORIDE
     Dosage: 0.25 MG, ONCE
     Route: 042
     Dates: start: 20170119, end: 20170119
  48. PROPACETAMOL [Concomitant]
     Active Substance: PROPACETAMOL
     Dosage: 2 DF, PRN
     Route: 042
     Dates: start: 20170227, end: 20170227
  49. PROPACETAMOL [Concomitant]
     Active Substance: PROPACETAMOL
     Dosage: 2 G, ONCE
     Route: 042
     Dates: start: 20170330, end: 20170330
  50. POTASSIUM CHLORIDE. [Concomitant]
     Active Substance: POTASSIUM CHLORIDE
     Indication: ELECTROLYTE SUBSTITUTION THERAPY
     Dosage: 1 G, BID
     Route: 042
     Dates: start: 20161227, end: 20161227
  51. POTASSIUM CHLORIDE. [Concomitant]
     Active Substance: POTASSIUM CHLORIDE
     Dosage: 0.5 AM,2
     Route: 042
     Dates: start: 20170119, end: 20170119
  52. POTASSIUM CHLORIDE. [Concomitant]
     Active Substance: POTASSIUM CHLORIDE
     Dosage: 40 MEQ, QD
     Route: 042
     Dates: start: 20170330, end: 20170430
  53. POTASSIUM CHLORIDE. [Concomitant]
     Active Substance: POTASSIUM CHLORIDE
     Dosage: 20 MEQ, BID
     Route: 042
     Dates: start: 20170419, end: 20170419
  54. MAGNESIUM SULFATE. [Concomitant]
     Active Substance: MAGNESIUM SULFATE
     Dosage: 1 G, BID
     Route: 042
     Dates: start: 20170315, end: 20170315
  55. RANITIDINE. [Concomitant]
     Active Substance: RANITIDINE
     Indication: ULCER
     Dosage: 150 ML, BID
     Dates: start: 20161227, end: 20170103
  56. SUCRALFATE. [Concomitant]
     Active Substance: SUCRALFATE
     Indication: ULCER
     Dosage: 15 ML, TID
     Dates: start: 20161227, end: 20170103
  57. FAMOTIDINE. [Concomitant]
     Active Substance: FAMOTIDINE
     Dosage: 20 MG, QD
     Route: 042
     Dates: start: 20170119, end: 20170119
  58. CISPLATIN. [Concomitant]
     Active Substance: CISPLATIN
     Indication: OVARIAN CANCER RECURRENT
     Dosage: 55.8 MG, ONCE, CYCLE 2
     Route: 042
     Dates: start: 20161227, end: 20161227
  59. DEXAMETHASONE. [Concomitant]
     Active Substance: DEXAMETHASONE
     Indication: CHEMOTHERAPY
     Dosage: 5 MG, ONCE
     Route: 042
     Dates: start: 20161227, end: 20161227
  60. AMLODIPINE BESYLATE. [Concomitant]
     Active Substance: AMLODIPINE BESYLATE
     Indication: HYPERTENSION
     Dosage: 1 TABLET, QD
     Route: 048
  61. POTASSIUM CHLORIDE. [Concomitant]
     Active Substance: POTASSIUM CHLORIDE
     Dosage: 20 MEQ, BID
     Route: 042
     Dates: start: 20170211, end: 20170211
  62. MAGNESIUM SULFATE. [Concomitant]
     Active Substance: MAGNESIUM SULFATE
     Indication: ELECTROLYTE SUBSTITUTION THERAPY
     Dosage: 1 G, BID
     Route: 042
     Dates: start: 20161227, end: 20161227
  63. FAMOTIDINE. [Concomitant]
     Active Substance: FAMOTIDINE
     Dosage: 20 MG, BID
     Route: 048
     Dates: start: 20170421, end: 20170421
  64. EMEND (FOSAPREPITANT DIMEGLUMINE) [Suspect]
     Active Substance: FOSAPREPITANT DIMEGLUMINE
     Dosage: 150 MG, ONCE
     Route: 042
     Dates: start: 20170419, end: 20170419
  65. DEXAMETHASONE. [Concomitant]
     Active Substance: DEXAMETHASONE
     Dosage: 8 MG, QD
     Route: 048
     Dates: start: 20170120, end: 20170120
  66. FUROSEMIDE. [Concomitant]
     Active Substance: FUROSEMIDE
     Dosage: 20 MG, BID
     Route: 042
     Dates: start: 20170315, end: 20170315
  67. MAGNESIUM SULFATE. [Concomitant]
     Active Substance: MAGNESIUM SULFATE
     Dosage: 0.5 G, BID
     Route: 042
     Dates: start: 20170419, end: 20170419
  68. MAGNESIUM SULFATE. [Concomitant]
     Active Substance: MAGNESIUM SULFATE
     Dosage: 1 G, BID
     Route: 042
     Dates: start: 20170419, end: 20170419
  69. SUCRALFATE. [Concomitant]
     Active Substance: SUCRALFATE
     Dosage: 15 ML, TID
     Dates: start: 20170119, end: 20170126
  70. SUCRALFATE. [Concomitant]
     Active Substance: SUCRALFATE
     Dosage: 15 ML, TID
     Dates: start: 20170419, end: 20170421
  71. METOCLOPRAMIDE. [Concomitant]
     Active Substance: METOCLOPRAMIDE
     Indication: PROPHYLAXIS OF NAUSEA AND VOMITING
     Dosage: 5 MG, PRN
     Route: 048
     Dates: start: 20170121, end: 20170526
  72. TOPOTECAN [Concomitant]
     Active Substance: TOPOTECAN HYDROCHLORIDE
     Dosage: 0.9 MG, QD, CYCLE 6
     Route: 042
     Dates: start: 20170419, end: 20170421
  73. DEXAMETHASONE. [Concomitant]
     Active Substance: DEXAMETHASONE
     Dosage: 8 MG, BID
     Route: 048
     Dates: start: 20161229, end: 20161230
  74. DEXAMETHASONE. [Concomitant]
     Active Substance: DEXAMETHASONE
     Dosage: 8 MG, QD
     Route: 048
     Dates: start: 20170212, end: 20170212
  75. PALONOSETRON HYDROCHLORIDE. [Concomitant]
     Active Substance: PALONOSETRON HYDROCHLORIDE
     Indication: PROPHYLAXIS OF NAUSEA AND VOMITING
     Dosage: 0.25 MG, ONCE
     Route: 042
     Dates: start: 20161227, end: 20161227
  76. PROPACETAMOL [Concomitant]
     Active Substance: PROPACETAMOL
     Indication: PYREXIA
     Dosage: 1 G, ONCE
     Route: 042
     Dates: start: 20161224, end: 20161224
  77. PROPACETAMOL [Concomitant]
     Active Substance: PROPACETAMOL
     Dosage: 1 DF, PRN
     Route: 042
     Dates: start: 20170227, end: 20170228
  78. RANITIDINE. [Concomitant]
     Active Substance: RANITIDINE
     Dosage: 150 ML, BID
     Dates: start: 20170315, end: 20170315
  79. SUCRALFATE. [Concomitant]
     Active Substance: SUCRALFATE
     Dosage: 15 ML, TID
     Dates: start: 20170315, end: 20170317
  80. FAMOTIDINE. [Concomitant]
     Active Substance: FAMOTIDINE
     Dosage: 20 MG, QD
     Route: 042
     Dates: start: 20170315, end: 20170317
  81. FAMOTIDINE. [Concomitant]
     Active Substance: FAMOTIDINE
     Dosage: 100 MG, QD
     Route: 048
     Dates: start: 20170303, end: 20170303
  82. FAMOTIDINE. [Concomitant]
     Active Substance: FAMOTIDINE
     Dosage: 20 MG, BID
     Route: 048
     Dates: start: 20170317, end: 20170326

REACTIONS (3)
  - Pyrexia [Recovered/Resolved]
  - Pyrexia [Recovered/Resolved]
  - Febrile neutropenia [Recovered/Resolved]

NARRATIVE: CASE EVENT DATE: 20170227
